FAERS Safety Report 10137755 (Version 4)
Quarter: 2014Q3

REPORT INFORMATION
  Report Type: Spontaneous
  Country: US (occurrence: None)
  Receive Date: 20140425
  Receipt Date: 20140716
  Transmission Date: 20150326
  Serious: Yes (Hospitalization)
  Sender: FDA-Public Use
  Company Number: UTC-047399

PATIENT
  Age: 46 Year
  Sex: Female
  Weight: 121.6 kg

DRUGS (2)
  1. WARFARIN (WARFARIN) [Concomitant]
     Active Substance: WARFARIN
  2. REMODULIN [Suspect]
     Active Substance: TREPROSTINIL
     Indication: PULMONARY ARTERIAL HYPERTENSION
     Dosage: 0.068 UG/KG, CONTINUING, SUBCUTANEOUS?
     Route: 058
     Dates: start: 20130927

REACTIONS (2)
  - Cellulitis [None]
  - Panniculitis [None]

NARRATIVE: CASE EVENT DATE: 20140408
